FAERS Safety Report 23916583 (Version 1)
Quarter: 2024Q2

REPORT INFORMATION
  Report Type: Spontaneous
  Country: US (occurrence: None)
  Receive Date: 20240528
  Receipt Date: 20240528
  Transmission Date: 20240716
  Serious: No
  Sender: FDA-Public Use
  Company Number: None

PATIENT
  Sex: Female

DRUGS (1)
  1. RECLAST [Suspect]
     Active Substance: ZOLEDRONIC ACID
     Indication: Osteoporosis
     Route: 042

REACTIONS (20)
  - Influenza like illness [None]
  - Back pain [None]
  - Chest pain [None]
  - Dyspnoea [None]
  - Paraesthesia [None]
  - Insomnia [None]
  - Arthralgia [None]
  - Pain in extremity [None]
  - Arthralgia [None]
  - Peripheral swelling [None]
  - Disturbance in attention [None]
  - Peripheral swelling [None]
  - Dysgeusia [None]
  - Fatigue [None]
  - Decreased appetite [None]
  - Dizziness [None]
  - Skin exfoliation [None]
  - Inflammation [None]
  - Anaemia [None]
  - Thrombocytosis [None]

NARRATIVE: CASE EVENT DATE: 20240314
